FAERS Safety Report 8196710-3 (Version None)
Quarter: 2012Q1

REPORT INFORMATION
  Report Type: 
  Country: None (occurrence: None)
  Receive Date: 20120309
  Receipt Date: 20120227
  Transmission Date: 20120608
  Serious: No
  Sender: FDA-Public Use
  Company Number: PHHY2012ES016472

PATIENT
  Age: 82 Year
  Sex: Male

DRUGS (5)
  1. ISOSORBIDE MONONITRATE [Concomitant]
  2. ASPIRIN [Concomitant]
  3. ADALAT [Concomitant]
  4. SIMVASTATIN [Concomitant]
  5. TASIGNA [Suspect]
     Indication: CHRONIC MYELOID LEUKAEMIA
     Dosage: 400 MG, DAILY
     Route: 048
     Dates: start: 20120214, end: 20120221

REACTIONS (9)
  - TONGUE HAEMORRHAGE [None]
  - TONGUE DISCOLOURATION [None]
  - PAPILLITIS [None]
  - VASODILATATION [None]
  - SPEECH DISORDER [None]
  - HAEMOGLOBIN DECREASED [None]
  - PLATELET COUNT DECREASED [None]
  - SWOLLEN TONGUE [None]
  - TONGUE DISORDER [None]
